FAERS Safety Report 9129318 (Version 1)
Quarter: 2013Q1

REPORT INFORMATION
  Report Type: Spontaneous
  Country: GA (occurrence: GA)
  Receive Date: 20130125
  Receipt Date: 20130125
  Transmission Date: 20140127
  Serious: Yes (Other)
  Sender: FDA-Public Use
  Company Number: GA-ASTRAZENECA-2013SE04604

PATIENT
  Age: 56 Year
  Sex: Male

DRUGS (1)
  1. CANDESARTAN HYDROCHLOROTHIAZIDE [Suspect]
     Route: 048

REACTIONS (1)
  - Pneumonia [Unknown]
